FAERS Safety Report 4976951-6 (Version None)
Quarter: 2006Q2

REPORT INFORMATION
  Report Type: 
  Country: None (occurrence: None)
  Receive Date: 20060413
  Receipt Date: 20060329
  Transmission Date: 20061013
  Serious: Yes (Congenital Anomaly, Other)
  Sender: FDA-Public Use
  Company Number: USA-2003-0007987

PATIENT
  Sex: 0

DRUGS (1)
  1. OXYCONTIN [Suspect]
     Indication: DRUG EXPOSURE DURING PREGNANCY

REACTIONS (6)
  - DRUG EXPOSURE DURING PREGNANCY [None]
  - DRUG WITHDRAWAL SYNDROME [None]
  - FACIAL DYSMORPHISM [None]
  - HYPERTONIA [None]
  - IRRITABILITY [None]
  - TREMOR [None]
